FAERS Safety Report 19778380 (Version 1)
Quarter: 2021Q3

REPORT INFORMATION
  Report Type: Spontaneous
  Country: CN (occurrence: CN)
  Receive Date: 20210902
  Receipt Date: 20210902
  Transmission Date: 20211014
  Serious: Yes (Hospitalization)
  Sender: FDA-Public Use
  Company Number: CN-BAYER-2021-201694

PATIENT
  Age: 67 Year
  Sex: Female
  Weight: 60 kg

DRUGS (6)
  1. DEANXIT [Suspect]
     Active Substance: FLUPENTIXOL DIHYDROCHLORIDE\MELITRACEN HYDROCHLORIDE
     Indication: SLEEP DISORDER
     Dosage: 1 DF, QD
     Route: 048
     Dates: start: 20150101, end: 20201125
  2. GLUCOBAY [Suspect]
     Active Substance: ACARBOSE
     Indication: DIABETES MELLITUS
     Dosage: 50 MG, QD
     Route: 048
     Dates: start: 20150101, end: 20201125
  3. QING RE JIE DU [Concomitant]
     Indication: NASOPHARYNGITIS
     Dosage: 3 DF, TID
     Route: 048
     Dates: start: 20201118, end: 20201125
  4. ADALAT [Interacting]
     Active Substance: NIFEDIPINE
     Indication: HYPERTENSION
     Dosage: 1 DF, QD
     Route: 048
     Dates: start: 20140101, end: 20201125
  5. GLUCOPHAGE [Interacting]
     Active Substance: METFORMIN HYDROCHLORIDE
     Indication: DIABETES MELLITUS
     Dosage: 0.5 G, TID
     Route: 048
     Dates: start: 20120101, end: 20201125
  6. LIAN HUA QING WEN [Concomitant]
     Indication: NASOPHARYNGITIS
     Dosage: 4 DF, TID
     Route: 048
     Dates: start: 20201118, end: 20201125

REACTIONS (5)
  - Drug-induced liver injury [Recovering/Resolving]
  - Hepatic function abnormal [Recovering/Resolving]
  - Labelled drug-drug interaction medication error [None]
  - Cholecystitis acute [None]
  - Abdominal pain upper [None]

NARRATIVE: CASE EVENT DATE: 20140101
